FAERS Safety Report 9474279 (Version 1)
Quarter: 2013Q3

REPORT INFORMATION
  Report Type: Spontaneous
  Country: GB (occurrence: GB)
  Receive Date: 20130823
  Receipt Date: 20130823
  Transmission Date: 20140515
  Serious: Yes (Other)
  Sender: FDA-Public Use
  Company Number: PHFR2013GB004853

PATIENT
  Age: 52 Year
  Sex: Male

DRUGS (3)
  1. TEGRETOL [Suspect]
     Indication: EPILEPSY
     Dosage: 400 MG, QID
     Route: 048
  2. VARENICLINE [Concomitant]
     Indication: SMOKING CESSATION THERAPY
     Dosage: UNK UKN, UNK
  3. EPILIM [Concomitant]
     Indication: EPILEPSY
     Dosage: UNK UKN, UNK

REACTIONS (2)
  - Upper limb fracture [Unknown]
  - Convulsion [Unknown]
